FAERS Safety Report 26052848 (Version 1)
Quarter: 2025Q4

REPORT INFORMATION
  Report Type: Report from Study
  Country: CA (occurrence: CA)
  Receive Date: 20251117
  Receipt Date: 20251117
  Transmission Date: 20260118
  Serious: Yes (Hospitalization, Other)
  Sender: SAMSUNG BIOEPIS
  Company Number: CA-SAMSUNG BIOEPIS-SB-2025-26326

PATIENT
  Age: 58 Year
  Sex: Male

DRUGS (3)
  1. HADLIMA [Suspect]
     Active Substance: ADALIMUMAB-BWWD
     Indication: Rheumatoid arthritis
     Dosage: 40 MG/0.8 ML;
     Dates: start: 20230613
  2. HADLIMA [Suspect]
     Active Substance: ADALIMUMAB-BWWD
     Dosage: HADLIMA RESTARTED;
  3. METHOTREXATE [Concomitant]
     Active Substance: METHOTREXATE
     Indication: Product used for unknown indication

REACTIONS (10)
  - Illness [Unknown]
  - Pyrexia [Unknown]
  - Influenza [Unknown]
  - COVID-19 [Unknown]
  - Weight decreased [Unknown]
  - Anal incontinence [Unknown]
  - Pneumonia [Unknown]
  - Peripheral swelling [Unknown]
  - Liver disorder [Unknown]
  - Anger [Unknown]

NARRATIVE: CASE EVENT DATE: 20241201
